FAERS Safety Report 8312331-3 (Version None)
Quarter: 2012Q2

REPORT INFORMATION
  Report Type: 
  Country: None (occurrence: None)
  Receive Date: 20120425
  Receipt Date: 20120417
  Transmission Date: 20120825
  Serious: Yes (Death, Hospitalization)
  Sender: FDA-Public Use
  Company Number: JP-AMGEN-JPNCT2012011817

PATIENT
  Age: 75 Year
  Sex: Male
  Weight: 45 kg

DRUGS (10)
  1. CORTICOSTEROIDS [Concomitant]
     Indication: PROPHYLAXIS
     Dosage: UNK
     Route: 065
  2. GRANISETRON [Concomitant]
     Dosage: UNK
     Route: 042
  3. FLUOROURACIL [Suspect]
     Route: 041
     Dates: start: 20101109, end: 20101109
  4. PANITUMUMAB [Suspect]
     Indication: COLORECTAL CANCER
     Dosage: 5 MG/KG, Q2WK
     Route: 041
     Dates: start: 20101109, end: 20111109
  5. POLARAMINE [Concomitant]
     Dosage: UNK
     Route: 042
  6. IRINOTECAN HCL [Suspect]
     Indication: COLORECTAL CANCER
     Route: 041
     Dates: start: 20101109, end: 20101109
  7. ANTIHISTAMINES [Concomitant]
     Indication: PROPHYLAXIS
     Dosage: UNK
     Route: 065
  8. LEUCOVORIN CALCIUM [Concomitant]
     Indication: COLORECTAL CANCER
     Route: 041
     Dates: start: 20101109, end: 20101109
  9. DECADRON [Concomitant]
     Dosage: UNK
     Route: 042
  10. FLUOROURACIL [Suspect]
     Indication: COLORECTAL CANCER
     Route: 040
     Dates: start: 20101109, end: 20101109

REACTIONS (6)
  - DIARRHOEA [None]
  - COLORECTAL CANCER [None]
  - DECREASED APPETITE [None]
  - BLOOD POTASSIUM DECREASED [None]
  - DERMATITIS ACNEIFORM [None]
  - NAIL DISORDER [None]
